FAERS Safety Report 5138227-6 (Version None)
Quarter: 2006Q4

REPORT INFORMATION
  Report Type: 
  Country: None (occurrence: None)
  Receive Date: 20061030
  Receipt Date: 20060728
  Transmission Date: 20070319
  Serious: No
  Sender: FDA-Public Use
  Company Number: US-GLAXOSMITHKLINE-A0613958A

PATIENT
  Age: 71 Year
  Sex: Female

DRUGS (4)
  1. ADVAIR HFA [Suspect]
     Indication: ASTHMA
     Dosage: 1PUFF TWICE PER DAY
     Route: 055
     Dates: start: 20060727, end: 20060727
  2. PREDNISONE TAB [Concomitant]
  3. BIAXIN [Concomitant]
  4. ROBITUSSIN [Concomitant]

REACTIONS (5)
  - FOAMING AT MOUTH [None]
  - HEART RATE INCREASED [None]
  - NERVOUSNESS [None]
  - PALPITATIONS [None]
  - VISION BLURRED [None]
